FAERS Safety Report 8011655-7 (Version None)
Quarter: 2011Q4

REPORT INFORMATION
  Report Type: 
  Country: None (occurrence: None)
  Receive Date: 20111228
  Receipt Date: 20111216
  Transmission Date: 20120403
  Serious: Yes (Other)
  Sender: FDA-Public Use
  Company Number: US-ELI_LILLY_AND_COMPANY-US201112005912

PATIENT
  Sex: Female

DRUGS (2)
  1. BYETTA [Suspect]
     Dosage: UNK, UNKNOWN
     Route: 058
  2. HUMALOG [Concomitant]
     Indication: DIABETES MELLITUS
     Dosage: 25 U, QD

REACTIONS (7)
  - VOMITING [None]
  - PAIN IN EXTREMITY [None]
  - OFF LABEL USE [None]
  - WEIGHT DECREASED [None]
  - NAUSEA [None]
  - MASTECTOMY [None]
  - BLOOD GLUCOSE INCREASED [None]
